FAERS Safety Report 7761793-9 (Version None)
Quarter: 2011Q3

REPORT INFORMATION
  Report Type: 
  Country: None (occurrence: None)
  Receive Date: 20110920
  Receipt Date: 20110913
  Transmission Date: 20111222
  Serious: Yes (Hospitalization)
  Sender: FDA-Public Use
  Company Number: PHHO2011DE15582

PATIENT
  Sex: Female
  Weight: 66.2 kg

DRUGS (3)
  1. AFINITOR [Suspect]
     Dosage: CODE NOT BROKEN
     Dates: start: 20110818
  2. AFINITOR [Suspect]
     Indication: TUBEROUS SCLEROSIS
     Dosage: CODE NOT BROKEN
     Dates: start: 20110308, end: 20110817
  3. MAGNESIUM DIASPORAL [Concomitant]
     Indication: MUSCLE SPASMS
     Dosage: 200 MG, UNK
     Route: 048
     Dates: start: 20110502

REACTIONS (1)
  - SALIVARY GLAND CALCULUS [None]
